FAERS Safety Report 23151072 (Version 4)
Quarter: 2023Q4

REPORT INFORMATION
  Report Type: Report from Study
  Country: NL (occurrence: NL)
  Receive Date: 20231106
  Receipt Date: 20231210
  Transmission Date: 20240109
  Serious: Yes (Death)
  Sender: FDA-Public Use
  Company Number: NL-ABBVIE-5480334

PATIENT
  Age: 79 Year
  Sex: Male
  Weight: 85 kg

DRUGS (7)
  1. CARBIDOPA\LEVODOPA [Suspect]
     Active Substance: CARBIDOPA\LEVODOPA
     Indication: Parkinson^s disease
     Dosage: MD:7.9ML; CD:6.4ML/H; ED:3.0ML; NCD:4.4ML/H,  REMAINED AT 24 HOURS.
     Route: 050
     Dates: start: 20230322
  2. CARBIDOPA\LEVODOPA [Suspect]
     Active Substance: CARBIDOPA\LEVODOPA
     Dosage: DISCONTINUED IN MAR 2020.
     Route: 050
     Dates: start: 20200303
  3. CARBIDOPA\LEVODOPA [Suspect]
     Active Substance: CARBIDOPA\LEVODOPA
     Dosage: MD:7.9ML; CD:6.4ML/H; ED:3.0ML; NCD:4.4ML/H REMAINED AT 24 HOURS.
     Route: 050
     Dates: start: 20200322
  4. CARBIDOPA\LEVODOPA [Suspect]
     Active Substance: CARBIDOPA\LEVODOPA
     Route: 050
  5. BENSERAZIDE\LEVODOPA [Concomitant]
     Active Substance: BENSERAZIDE\LEVODOPA
     Indication: Parkinson^s disease
     Dosage: AFTER DISCONNECTING THE PUMP, FORM STRENGTH: 250
     Dates: start: 20160120, end: 20200303
  6. CARBIDOPA AND LEVODOPA [Concomitant]
     Active Substance: CARBIDOPA\LEVODOPA
     Indication: Parkinson^s disease
     Dosage: TIME INTERVAL: 0.16666667 DAYS: FORM STRENGTH: 250 MG
     Dates: start: 20100201, end: 20200303
  7. PRAMIPEXOLE [Concomitant]
     Active Substance: PRAMIPEXOLE
     Indication: Parkinson^s disease
     Dosage: FORM STRENGTH: 375 MICROGRAM
     Dates: start: 20160301, end: 20200303

REACTIONS (1)
  - Pancreatitis [Fatal]

NARRATIVE: CASE EVENT DATE: 20230101
